FAERS Safety Report 7205538-X (Version None)
Quarter: 2010Q4

REPORT INFORMATION
  Report Type: 
  Country: None (occurrence: None)
  Receive Date: 20101231
  Receipt Date: 20101219
  Transmission Date: 20110411
  Serious: Yes (Hospitalization, Other)
  Sender: FDA-Public Use
  Company Number: PHHY2010US84128

PATIENT
  Sex: Male

DRUGS (14)
  1. GLEEVEC [Suspect]
     Indication: CHRONIC MYELOID LEUKAEMIA
     Dosage: 400 MG, QD
     Dates: start: 20010601
  2. GLEEVEC [Suspect]
     Dosage: 100 MG, QID
     Route: 048
     Dates: start: 20080616
  3. GLEEVEC [Suspect]
     Dosage: 300 MG DAILY
     Route: 048
     Dates: start: 20101206
  4. VALTURNA [Concomitant]
     Route: 048
  5. ASCORBIC ACID [Concomitant]
     Dosage: 500 MG DAILY
     Route: 048
  6. ASPIRIN [Concomitant]
     Dosage: 81 MG DAILY
     Route: 048
  7. ZIAC [Concomitant]
     Dosage: 2.5/6.25 MG DAILY
     Route: 048
  8. OSTEO BI-FLEX [Concomitant]
     Route: 048
  9. PLAVIX [Concomitant]
     Route: 048
  10. FERROUS SULFATE [Concomitant]
     Dosage: 325 MG
     Route: 048
  11. MAGNESIUM OXIDE [Concomitant]
     Dosage: 250 MG
     Route: 048
  12. CARAFATE [Concomitant]
  13. NITROGLYCERIN [Concomitant]
  14. EPIPEN [Concomitant]

REACTIONS (12)
  - BLOOD COUNT ABNORMAL [None]
  - BLOOD CREATININE INCREASED [None]
  - BLOOD PRESSURE INADEQUATELY CONTROLLED [None]
  - CARDIAC DISORDER [None]
  - CHEST PAIN [None]
  - DEVICE OCCLUSION [None]
  - EJECTION FRACTION DECREASED [None]
  - IRON DEFICIENCY ANAEMIA [None]
  - PALLOR [None]
  - PERIORBITAL OEDEMA [None]
  - SINUS BRADYCARDIA [None]
  - VENTRICULAR FIBRILLATION [None]
